FAERS Safety Report 7792291-4 (Version None)
Quarter: 2011Q4

REPORT INFORMATION
  Report Type: 
  Country: None (occurrence: None)
  Receive Date: 20111003
  Receipt Date: 20110922
  Transmission Date: 20120403
  Serious: Yes (Other)
  Sender: FDA-Public Use
  Company Number: FR-SANOFI-AVENTIS-2011SA062126

PATIENT
  Age: 54 Year
  Sex: Male

DRUGS (2)
  1. MULTAQ [Suspect]
     Route: 048
     Dates: start: 20110701
  2. CORDARONE [Suspect]
     Route: 048
     Dates: start: 20090101, end: 20110101

REACTIONS (1)
  - HYPERTHYROIDISM [None]
